FAERS Safety Report 17874800 (Version 1)
Quarter: 2020Q2

REPORT INFORMATION
  Report Type: Spontaneous
  Country: US (occurrence: US)
  Receive Date: 20200609
  Receipt Date: 20200609
  Transmission Date: 20200714
  Serious: No
  Sender: FDA-Public Use
  Company Number: US-ENDO PHARMACEUTICALS INC-2019-107886

PATIENT
  Age: 9 Year
  Sex: Female
  Weight: 34.6 kg

DRUGS (1)
  1. SUPPRELIN LA [Suspect]
     Active Substance: HISTRELIN ACETATE
     Indication: PRECOCIOUS PUBERTY
     Dosage: 50 MG, ONCE A YEAR
     Route: 058
     Dates: start: 20190725

REACTIONS (1)
  - Drug ineffective [Not Recovered/Not Resolved]

NARRATIVE: CASE EVENT DATE: 20190816
